FAERS Safety Report 10360115 (Version 1)
Quarter: 2014Q3

REPORT INFORMATION
  Report Type: Spontaneous
  Country: US (occurrence: None)
  Receive Date: 20140801
  Receipt Date: 20140801
  Transmission Date: 20150326
  Serious: No
  Sender: FDA-Public Use
  Company Number: None

PATIENT
  Age: 52 Year
  Sex: Female
  Weight: 95 kg

DRUGS (7)
  1. NOVOLOG [Concomitant]
     Active Substance: INSULIN ASPART
  2. HCTZ [Concomitant]
     Active Substance: HYDROCHLOROTHIAZIDE
  3. METFORMIN [Concomitant]
     Active Substance: METFORMIN HYDROCHLORIDE
  4. VICTOZA [Suspect]
     Active Substance: LIRAGLUTIDE
     Indication: DIABETES MELLITUS
     Route: 058
     Dates: start: 20140325, end: 20140710
  5. DIOVAN [Concomitant]
     Active Substance: VALSARTAN
  6. LANTUS [Concomitant]
     Active Substance: INSULIN GLARGINE
  7. VOLTAREN [Concomitant]
     Active Substance: DICLOFENAC SODIUM

REACTIONS (5)
  - Chromaturia [None]
  - Urine odour abnormal [None]
  - Blood creatinine increased [None]
  - Renal failure acute [None]
  - Urine abnormality [None]

NARRATIVE: CASE EVENT DATE: 20140709
